FAERS Safety Report 5112884-2 (Version None)
Quarter: 2006Q3

REPORT INFORMATION
  Report Type: 
  Country: None (occurrence: None)
  Receive Date: 20060921
  Receipt Date: 20060921
  Transmission Date: 20061208
  Serious: No
  Sender: FDA-Public Use
  Company Number: None

PATIENT
  Age: 76 Year
  Sex: Female
  Weight: 98.4306 kg

DRUGS (1)
  1. MYSOLINE [Suspect]
     Indication: ESSENTIAL TREMOR
     Dosage: 50 MG TID ORAL
     Route: 048
     Dates: start: 20060601

REACTIONS (4)
  - DIZZINESS [None]
  - GAIT DISTURBANCE [None]
  - SPEECH DISORDER [None]
  - TREMOR [None]
